FAERS Safety Report 8766109 (Version 1)
Quarter: 2012Q4

REPORT INFORMATION
  Report Type: 
  Country: US (occurrence: US)
  Receive Date: 20120904
  Receipt Date: 20120904
  Transmission Date: 20130627
  Serious: Yes (Hospitalization, Other)
  Sender: FDA-Public Use
  Company Number: US-009507513-1109USA03242

PATIENT

DRUGS (11)
  1. FOSAMAX [Suspect]
     Indication: OSTEOPENIA
     Dosage: 70 mg, QW
     Route: 048
     Dates: start: 20010504, end: 20011118
  2. FOSAMAX [Suspect]
     Dosage: 70 mg, QW
     Route: 048
     Dates: start: 20040325, end: 20070325
  3. FOSAMAX PLUS D [Suspect]
     Indication: OSTEOPENIA
     Dosage: 70/2800
     Route: 048
     Dates: start: 20070525, end: 20090414
  4. FOSAMAX PLUS D [Suspect]
     Dosage: 70/5600
     Route: 048
     Dates: start: 20090415, end: 20090604
  5. ACTONEL [Suspect]
     Indication: OSTEOPENIA
     Dosage: 150 mg, QM
     Route: 048
     Dates: start: 20090605, end: 20110110
  6. VITAMIN B COMPLEX [Concomitant]
     Dosage: 1 DF, qd
     Route: 048
  7. CALCIUM CITRATE [Concomitant]
     Dosage: 1200 mg, qd
     Route: 048
  8. ASCORBIC ACID [Concomitant]
     Dosage: 500 mg, qd
     Route: 048
  9. OMEGA-3 MARINE TRIGLYCERIDES [Concomitant]
     Dosage: 1200 mg, qd
     Route: 048
  10. VITAMIN E [Concomitant]
     Dosage: 400 IU, qd
  11. VITAMIN D (UNSPECIFIED) [Concomitant]
     Dosage: 1000 IU, qd
     Route: 048

REACTIONS (31)
  - Femur fracture [Unknown]
  - Anaemia postoperative [Unknown]
  - Spinal cord compression [Unknown]
  - Spinal osteoarthritis [Unknown]
  - Cholecystectomy [Unknown]
  - Rotator cuff syndrome [Unknown]
  - Shoulder operation [Unknown]
  - Osteoarthritis [Unknown]
  - Vestibular neuronitis [Recovered/Resolved]
  - Cardiac disorder [Unknown]
  - Adverse event [Unknown]
  - Rhinitis allergic [Unknown]
  - Aortic calcification [Unknown]
  - Open reduction of fracture [Unknown]
  - Open reduction of fracture [Unknown]
  - Femur fracture [Recovered/Resolved]
  - Fracture delayed union [Unknown]
  - Vitamin D deficiency [Unknown]
  - Thyroid disorder [Unknown]
  - Blood cholesterol increased [Not Recovered/Not Resolved]
  - Bunion [Unknown]
  - Bunion [Unknown]
  - Insomnia [Unknown]
  - Spinal column stenosis [Not Recovered/Not Resolved]
  - Intervertebral disc disorder [Unknown]
  - Vertebral foraminal stenosis [Unknown]
  - Irritable bowel syndrome [Unknown]
  - Bone density decreased [Unknown]
  - Gait disturbance [Unknown]
  - Muscle spasms [Unknown]
  - Gastrooesophageal reflux disease [Not Recovered/Not Resolved]
